FAERS Safety Report 5858876-7 (Version None)
Quarter: 2008Q3

REPORT INFORMATION
  Report Type: 
  Country: None (occurrence: None)
  Receive Date: 20080825
  Receipt Date: 20080818
  Transmission Date: 20090109
  Serious: Yes (Death, Hospitalization)
  Sender: FDA-Public Use
  Company Number: 2008AL006063

PATIENT
  Age: 73 Year
  Sex: Male

DRUGS (3)
  1. DIGOXIN [Suspect]
     Indication: CARDIAC DISORDER
     Dosage: PO
     Route: 048
     Dates: start: 20071024, end: 20080222
  2. LASIX [Concomitant]
  3. INSULIN [Concomitant]

REACTIONS (5)
  - ACUTE MYOCARDIAL INFARCTION [None]
  - ASTHENIA [None]
  - HYPOTENSION [None]
  - NAUSEA [None]
  - UNEVALUABLE EVENT [None]
